FAERS Safety Report 5678102-1 (Version None)
Quarter: 2008Q1

REPORT INFORMATION
  Report Type: 
  Country: None (occurrence: None)
  Receive Date: 20080324
  Receipt Date: 20080324
  Transmission Date: 20080703
  Serious: No
  Sender: FDA-Public Use
  Company Number: None

PATIENT
  Sex: Female
  Weight: 90.7194 kg

DRUGS (1)
  1. ZOLOFT [Suspect]
     Indication: DEPRESSION
     Dosage: 150 MG DAILY PO
     Route: 048
     Dates: start: 20000101, end: 20030801

REACTIONS (15)
  - DIZZINESS [None]
  - DRUG WITHDRAWAL SYNDROME [None]
  - DYSPHAGIA [None]
  - HEADACHE [None]
  - HYPERTENSION [None]
  - ILL-DEFINED DISORDER [None]
  - IMPAIRED WORK ABILITY [None]
  - INSOMNIA [None]
  - MUSCLE SPASMS [None]
  - MUSCLE TWITCHING [None]
  - NAUSEA [None]
  - NERVOUS SYSTEM DISORDER [None]
  - PAIN OF SKIN [None]
  - PALPITATIONS [None]
  - VISION BLURRED [None]
